FAERS Safety Report 8446020-1 (Version None)
Quarter: 2012Q2

REPORT INFORMATION
  Report Type: 
  Country: None (occurrence: None)
  Receive Date: 20120618
  Receipt Date: 20120613
  Transmission Date: 20120825
  Serious: Yes (Other)
  Sender: FDA-Public Use
  Company Number: US-ROCHE-784290

PATIENT
  Sex: Female
  Weight: 61.744 kg

DRUGS (3)
  1. ACCUTANE [Suspect]
     Route: 065
     Dates: start: 20020416, end: 20020930
  2. ACCUTANE [Suspect]
     Indication: ACNE
     Route: 065
  3. ACCUTANE [Suspect]
     Route: 065
     Dates: start: 20020303, end: 20020416

REACTIONS (7)
  - DEPRESSION [None]
  - COLITIS ULCERATIVE [None]
  - XEROSIS [None]
  - INFLAMMATORY BOWEL DISEASE [None]
  - IRRITABLE BOWEL SYNDROME [None]
  - ANXIETY [None]
  - CHEILITIS [None]
